FAERS Safety Report 11273486 (Version 1)
Quarter: 2015Q2

REPORT INFORMATION
  Report Type: Spontaneous
  Country: US (occurrence: None)
  Receive Date: 20150625
  Receipt Date: 20150625
  Transmission Date: 20150821
  Serious: No
  Sender: FDA-Public Use
  Company Number: A-NJ2015-115028

PATIENT
  Age: 78 Year
  Sex: Female

DRUGS (12)
  1. VITAMIN D (ERGOCALCIFEROL) [Concomitant]
     Active Substance: ERGOCALCIFEROL
  2. LEVOTHYROXINE (LEVOTHYROXINE) [Concomitant]
     Active Substance: LEVOTHYROXINE
  3. ATENOLOL (ATENOLOL) [Concomitant]
     Active Substance: ATENOLOL
  4. PROAIR HFA [Concomitant]
     Active Substance: ALBUTEROL SULFATE
  5. CO Q 10 (UBIDECARENONE) [Concomitant]
  6. ALLOPURINOL (ALLOPURINOL) [Concomitant]
     Active Substance: ALLOPURINOL
  7. FUROSEMIDE (FUROSEMIDE) [Concomitant]
     Active Substance: FUROSEMIDE
  8. DIAZEPAM (DIAZEPAM) [Concomitant]
     Active Substance: DIAZEPAM
  9. LOSARTAN (LOSARTAN) [Concomitant]
     Active Substance: LOSARTAN
  10. OPSUMIT [Suspect]
     Active Substance: MACITENTAN
     Indication: PULMONARY ARTERIAL HYPERTENSION
     Route: 048
     Dates: start: 20150202
  11. FLUOXETINE (FLUOXETINE) [Concomitant]
     Active Substance: FLUOXETINE HYDROCHLORIDE
  12. SIMVASTATIN (SIMVASTATIN) [Concomitant]
     Active Substance: SIMVASTATIN

REACTIONS (4)
  - Nausea [None]
  - Rhinorrhoea [None]
  - Nasal congestion [None]
  - Sinusitis [None]

NARRATIVE: CASE EVENT DATE: 20150302
